FAERS Safety Report 19696098 (Version 1)
Quarter: 2021Q3

REPORT INFORMATION
  Report Type: Spontaneous
  Country: US (occurrence: US)
  Receive Date: 20210812
  Receipt Date: 20210812
  Transmission Date: 20211014
  Serious: Yes (Death, Hospitalization)
  Sender: FDA-Public Use
  Company Number: None

PATIENT
  Age: 59 Year
  Sex: Male

DRUGS (18)
  1. HUMULIN N [Concomitant]
     Active Substance: INSULIN HUMAN
  2. ALFUZOSIN [Concomitant]
     Active Substance: ALFUZOSIN
  3. MVI [Concomitant]
     Active Substance: VITAMINS
  4. SPIRCNOLACTONE [Concomitant]
  5. DIGOXIN. [Concomitant]
     Active Substance: DIGOXIN
  6. FERROUS SULFATE. [Concomitant]
     Active Substance: FERROUS SULFATE
  7. TACTALAFIL [Concomitant]
  8. BUMETANIDE. [Concomitant]
     Active Substance: BUMETANIDE
  9. ATORVASTATIN [Concomitant]
     Active Substance: ATORVASTATIN
  10. VENTOLIN HFA [Concomitant]
     Active Substance: ALBUTEROL SULFATE
  11. AMBRISENTAN 5MG TABLETS 30/BO: 5MG [Suspect]
     Active Substance: AMBRISENTAN
     Indication: PULMONARY HYPERTENSION
     Route: 048
     Dates: start: 20180222, end: 202103
  12. VITAMIN B?1 [Concomitant]
     Active Substance: THIAMINE HYDROCHLORIDE
  13. UPTRAVI [Concomitant]
     Active Substance: SELEXIPAG
  14. WIXELA INHUB [Concomitant]
     Active Substance: FLUTICASONE PROPIONATE\SALMETEROL XINAFOATE
  15. FOLIC ACID. [Concomitant]
     Active Substance: FOLIC ACID
  16. HUMULIN R [Concomitant]
     Active Substance: INSULIN HUMAN
  17. GABAPENTIN. [Concomitant]
     Active Substance: GABAPENTIN
  18. ZOFRAN [Concomitant]
     Active Substance: ONDANSETRON HYDROCHLORIDE

REACTIONS (8)
  - Anaemia [None]
  - Aortic stenosis [None]
  - Pericardial effusion [None]
  - Cardiac tamponade [None]
  - Therapy interrupted [None]
  - Pulseless electrical activity [None]
  - Aortic annulus rupture [None]
  - Cardiac arrest [None]

NARRATIVE: CASE EVENT DATE: 20210709
